FAERS Safety Report 5066649-0 (Version None)
Quarter: 2006Q3

REPORT INFORMATION
  Report Type: 
  Country: None (occurrence: None)
  Receive Date: 20060801
  Receipt Date: 20060712
  Transmission Date: 20061208
  Serious: Yes (Hospitalization)
  Sender: FDA-Public Use
  Company Number: 2006AP03262

PATIENT
  Age: 724 Month
  Sex: Female
  Weight: 44 kg

DRUGS (10)
  1. ARIMIDEX [Suspect]
     Indication: BREAST CANCER
     Route: 048
     Dates: start: 20051019, end: 20060711
  2. LOXONIN [Concomitant]
     Indication: PYREXIA
     Route: 048
     Dates: start: 20051019, end: 20051101
  3. RADIATION [Concomitant]
     Dosage: 50 GY
     Dates: start: 20051017
  4. FLOMOX [Concomitant]
  5. CEFZON [Concomitant]
  6. VOLTAREN [Concomitant]
  7. CLARITHROMYCIN [Concomitant]
  8. KYORIN-AP [Concomitant]
  9. BIO THREE [Concomitant]
  10. CABAGIN-U [Concomitant]

REACTIONS (1)
  - CRYPTOGENIC ORGANISING PNEUMONIA [None]
